FAERS Safety Report 4445318-1 (Version None)
Quarter: 2004Q3

REPORT INFORMATION
  Report Type: 
  Country: None (occurrence: None)
  Receive Date: 20040903
  Receipt Date: 20040819
  Transmission Date: 20050211
  Serious: Yes (Hospitalization)
  Sender: FDA-Public Use
  Company Number: 04P-028-0271537-00

PATIENT
  Age: 45 Year
  Sex: Male

DRUGS (3)
  1. KALETRA [Suspect]
     Dosage: 12 TABLET, 1 IN 1 D, PER ORAL
     Route: 048
     Dates: start: 20020419
  2. LAMIVUDINE [Suspect]
     Dosage: 600 MG, 1 IN 1 D, PER ORAL
     Route: 048
     Dates: start: 20020419
  3. STAVUDINE [Suspect]
     Dosage: 160 MG, 1 IN 1 D, PER ORAL
     Route: 048
     Dates: start: 19720419

REACTIONS (1)
  - SUICIDAL IDEATION [None]
